FAERS Safety Report 10626330 (Version 2)
Quarter: 2014Q4

REPORT INFORMATION
  Report Type: Spontaneous
  Country: DE (occurrence: DE)
  Receive Date: 20141204
  Receipt Date: 20141229
  Transmission Date: 20150529
  Serious: Yes (Other)
  Sender: FDA-Public Use
  Company Number: DE-B.I. PHARMACEUTICALS,INC./RIDGEFIELD-2014-BI-57963DE

PATIENT
  Age: 67 Year
  Sex: Male
  Weight: 135 kg

DRUGS (9)
  1. SPIRONOLACTON [Concomitant]
     Active Substance: SPIRONOLACTONE
     Indication: HYPERTENSION
     Dosage: DAILY DOSE:50
     Route: 048
  2. L-LIPONS?URE [Concomitant]
     Indication: DIABETIC NEUROPATHY
     Dosage: DAILY DOSE:600
     Route: 048
     Dates: start: 201408
  3. SIFROL [Suspect]
     Active Substance: PRAMIPEXOLE
     Indication: RESTLESS LEGS SYNDROME
     Dosage: 1.04 MG
     Route: 065
     Dates: start: 2011, end: 201408
  4. PRAMIPEXOL [Suspect]
     Active Substance: PRAMIPEXOLE
     Indication: RESTLESS LEGS SYNDROME
     Dosage: 0.52 MG
     Route: 065
     Dates: start: 201408, end: 201411
  5. ASPIRIN. [Concomitant]
     Active Substance: ASPIRIN
     Indication: HYPERTENSION
     Dosage: DAILY DOSE: 100
     Route: 048
  6. ATACAND [Concomitant]
     Active Substance: CANDESARTAN CILEXETIL
     Indication: HYPERTENSION
     Dosage: DAILY DOSE:16, 12.5
     Route: 048
  7. PRAMIPEXOL [Suspect]
     Active Substance: PRAMIPEXOLE
     Dosage: 0.18 MG
     Route: 065
     Dates: start: 201408, end: 201411
  8. NEBILET [Concomitant]
     Active Substance: NEBIVOLOL
     Indication: HYPERTENSION
     Dosage: DAILY DOSE:5
     Route: 048
  9. ALLOPURINOL. [Concomitant]
     Active Substance: ALLOPURINOL
     Indication: HYPERTENSION
     Dosage: DAILY DOSE:300
     Route: 048

REACTIONS (1)
  - Retinal detachment [Not Recovered/Not Resolved]

NARRATIVE: CASE EVENT DATE: 20140925
